FAERS Safety Report 8490455 (Version 3)
Quarter: 2013Q1

REPORT INFORMATION
  Report Type: Spontaneous
  Country: US (occurrence: US)
  Receive Date: 20120403
  Receipt Date: 20130121
  Transmission Date: 20140127
  Serious: Yes (Hospitalization)
  Sender: FDA-Public Use
  Company Number: US-BIOGENIDEC-2012BI010905

PATIENT
  Age: 58 Year
  Sex: Female

DRUGS (5)
  1. TYSABRI [Suspect]
     Indication: MULTIPLE SCLEROSIS
     Route: 042
     Dates: start: 20110830
  2. CLONAZEPAM [Concomitant]
     Indication: MUSCLE SPASTICITY
  3. PRISTIQ [Concomitant]
     Indication: DEPRESSION
  4. HYDROCODONE [Concomitant]
     Indication: MUSCLE SPASTICITY
  5. AMITRIPTYLINE [Concomitant]
     Indication: MIGRAINE

REACTIONS (3)
  - Rectal prolapse [Recovered/Resolved]
  - Female genital tract fistula [Recovered/Resolved]
  - Gastrointestinal stoma complication [Recovered/Resolved]
